FAERS Safety Report 5444656-3 (Version None)
Quarter: 2007Q3

REPORT INFORMATION
  Report Type: 
  Country: None (occurrence: None)
  Receive Date: 20070906
  Receipt Date: 20070119
  Transmission Date: 20080115
  Serious: No
  Sender: FDA-Public Use
  Company Number: A0636314A

PATIENT
  Age: 66 Year
  Sex: Female

DRUGS (3)
  1. REQUIP [Suspect]
     Indication: RESTLESS LEGS SYNDROME
     Dosage: 1MG PER DAY
     Route: 048
     Dates: start: 20070115
  2. SYNTHROID [Concomitant]
  3. KLONOPIN [Concomitant]

REACTIONS (3)
  - BLOOD PRESSURE INCREASED [None]
  - DIARRHOEA [None]
  - HEART RATE INCREASED [None]
